FAERS Safety Report 16269075 (Version 2)
Quarter: 2019Q3

REPORT INFORMATION
  Report Type: Report from Study
  Country: BR (occurrence: BR)
  Receive Date: 20190503
  Receipt Date: 20190826
  Transmission Date: 20191004
  Serious: Yes (Death, Hospitalization, Other)
  Sender: FDA-Public Use
  Company Number: BR-ROCHE-2310859

PATIENT
  Age: 38 Year
  Sex: Female

DRUGS (2)
  1. CYCLOSPORINE. [Concomitant]
     Active Substance: CYCLOSPORINE
     Indication: RHEUMATOID ARTHRITIS
  2. MABTHERA [Suspect]
     Active Substance: RITUXIMAB
     Indication: RHEUMATOID ARTHRITIS
     Route: 042
     Dates: start: 20131030, end: 20190324

REACTIONS (13)
  - Colitis [Unknown]
  - Anal incontinence [Unknown]
  - Weight decreased [Unknown]
  - Meningitis [Unknown]
  - Lymphoedema [Unknown]
  - Immunodeficiency [Unknown]
  - Heart rate increased [Unknown]
  - Dyspnoea [Unknown]
  - Hypokinesia [Unknown]
  - Polymyositis [Unknown]
  - Sepsis [Fatal]
  - Gastric dilatation [Unknown]
  - Urinary incontinence [Unknown]

NARRATIVE: CASE EVENT DATE: 2018
